FAERS Safety Report 4962852-6 (Version None)
Quarter: 2006Q1

REPORT INFORMATION
  Report Type: 
  Country: None (occurrence: None)
  Receive Date: 20060331
  Receipt Date: 20060323
  Transmission Date: 20060701
  Serious: Yes (Hospitalization)
  Sender: FDA-Public Use
  Company Number: HQWYE494623MAR06

PATIENT
  Age: 68 Year
  Sex: Male

DRUGS (9)
  1. CORDARONE [Suspect]
     Dosage: 200 MG TABLET ORAL
     Route: 048
  2. DACARBAZINE [Suspect]
     Indication: METASTATIC MALIGNANT MELANOMA
     Dosage: ^CURES^ 100 MG TABELT INTRAVENOUS
     Route: 042
     Dates: start: 20041201
  3. DIGOXIN [Concomitant]
  4. LASIX [Concomitant]
  5. DILTIAZEM HYDROCHLORIDE [Concomitant]
  6. VALSARTAN [Concomitant]
  7. PREVISCAN              (FLUINDIONE) [Concomitant]
  8. OMEPRAZOLE [Concomitant]
  9. POTASSIUM CHLORIDE [Concomitant]

REACTIONS (4)
  - DYSPNOEA [None]
  - HYPOXIA [None]
  - INTERSTITIAL LUNG DISEASE [None]
  - LYMPHADENOPATHY MEDIASTINAL [None]
